FAERS Safety Report 10052995 (Version 1)
Quarter: 2014Q2

REPORT INFORMATION
  Report Type: Spontaneous
  Country: US (occurrence: US)
  Receive Date: 20140402
  Receipt Date: 20140402
  Transmission Date: 20141212
  Serious: No
  Sender: FDA-Public Use
  Company Number: US-ROXANE LABORATORIES, INC.-2014-RO-00534RO

PATIENT
  Age: 37 Year
  Sex: Female

DRUGS (2)
  1. LITHIUM CARBONATE [Suspect]
     Indication: PRODUCT USED FOR UNKNOWN INDICATION
     Route: 065
  2. LATUDA [Suspect]
     Indication: BIPOLAR I DISORDER
     Dosage: 40 MG
     Route: 048

REACTIONS (2)
  - Akathisia [Recovered/Resolved]
  - Insomnia [Unknown]
